FAERS Safety Report 7522838-4 (Version None)
Quarter: 2011Q2

REPORT INFORMATION
  Report Type: 
  Country: None (occurrence: None)
  Receive Date: 20110603
  Receipt Date: 20110525
  Transmission Date: 20111010
  Serious: Yes (Hospitalization)
  Sender: FDA-Public Use
  Company Number: PHHY2011TW45479

PATIENT
  Age: 71 Year
  Sex: Female

DRUGS (3)
  1. ASPIRIN [Suspect]
     Indication: MYOCARDIAL ISCHAEMIA
     Dosage: 300 MG, UNK
  2. ENOXAPARIN [Suspect]
     Indication: MYOCARDIAL ISCHAEMIA
     Dosage: 1 MG/KG, Q12H
     Route: 058
  3. CLOPIDOGREL [Suspect]
     Indication: MYOCARDIAL ISCHAEMIA
     Dosage: 300 MG, UNK

REACTIONS (18)
  - HAEMOGLOBIN DECREASED [None]
  - BLOOD CREATINE PHOSPHOKINASE MB INCREASED [None]
  - TROPONIN I INCREASED [None]
  - SEPSIS [None]
  - MUSCLE HAEMORRHAGE [None]
  - RENAL FAILURE ACUTE [None]
  - BLOOD CREATINE PHOSPHOKINASE INCREASED [None]
  - LEFT VENTRICULAR DYSFUNCTION [None]
  - PLATELET COUNT DECREASED [None]
  - ABDOMINAL PAIN LOWER [None]
  - ESCHERICHIA TEST POSITIVE [None]
  - HAEMORRHAGE INTRACRANIAL [None]
  - INTERNATIONAL NORMALISED RATIO INCREASED [None]
  - HEART INJURY [None]
  - HEMIPARESIS [None]
  - HAEMATOCRIT DECREASED [None]
  - ACTIVATED PARTIAL THROMBOPLASTIN TIME PROLONGED [None]
  - C-REACTIVE PROTEIN INCREASED [None]
